FAERS Safety Report 8085486-6 (Version None)
Quarter: 2012Q1

REPORT INFORMATION
  Report Type: 
  Country: None (occurrence: None)
  Receive Date: 20120128
  Receipt Date: 20110411
  Transmission Date: 20120608
  Serious: No
  Sender: FDA-Public Use
  Company Number: US-ABBOTT-11P-163-0710784-00

PATIENT
  Sex: Female
  Weight: 43.13 kg

DRUGS (4)
  1. OXYCODONE HCL [Concomitant]
     Indication: RHEUMATOID ARTHRITIS
     Route: 048
  2. DURAGESIC-100 [Concomitant]
     Indication: ARTHRALGIA
     Route: 061
  3. HUMIRA [Suspect]
     Indication: RHEUMATOID ARTHRITIS
     Route: 058
     Dates: start: 20110201
  4. HUMIRA [Suspect]
     Route: 058
     Dates: start: 20090201, end: 20110201

REACTIONS (5)
  - ARTHRALGIA [None]
  - WRONG TECHNIQUE IN DRUG USAGE PROCESS [None]
  - RHEUMATOID ARTHRITIS [None]
  - INFLUENZA [None]
  - NODULE [None]
